FAERS Safety Report 12980160 (Version 1)
Quarter: 2016Q4

REPORT INFORMATION
  Report Type: Spontaneous
  Country: US (occurrence: US)
  Receive Date: 20161128
  Receipt Date: 20161128
  Transmission Date: 20170207
  Serious: Yes (Death, Hospitalization, Other)
  Sender: FDA-Public Use
  Company Number: US-SA-2016SA187454

PATIENT
  Age: 65 Year
  Sex: Female

DRUGS (1)
  1. AUBAGIO [Suspect]
     Active Substance: TERIFLUNOMIDE
     Indication: MULTIPLE SCLEROSIS RELAPSE
     Route: 048
     Dates: start: 201401, end: 20140914

REACTIONS (4)
  - Respiratory arrest [Unknown]
  - Dyspnoea [Unknown]
  - Myocardial infarction [Fatal]
  - Gastric ulcer [Unknown]

NARRATIVE: CASE EVENT DATE: 20160914
